FAERS Safety Report 19937087 (Version 1)
Quarter: 2021Q4

REPORT INFORMATION
  Report Type: Spontaneous
  Country: US (occurrence: US)
  Receive Date: 20211010
  Receipt Date: 20211010
  Transmission Date: 20220303
  Serious: No
  Sender: FDA-Public Use
  Company Number: US-SA-SAC20211007000398

PATIENT
  Sex: Female

DRUGS (1)
  1. AUBAGIO [Suspect]
     Active Substance: TERIFLUNOMIDE
     Indication: Multiple sclerosis
     Dosage: 1 DF, QD
     Route: 048
     Dates: start: 20200402

REACTIONS (5)
  - Dizziness [Unknown]
  - Nail discolouration [Unknown]
  - Abdominal discomfort [Unknown]
  - Diarrhoea [Unknown]
  - Product dose omission issue [Unknown]
